FAERS Safety Report 17523747 (Version 3)
Quarter: 2021Q1

REPORT INFORMATION
  Report Type: Spontaneous
  Country: US (occurrence: US)
  Receive Date: 20200311
  Receipt Date: 20210310
  Transmission Date: 20210419
  Serious: No
  Sender: FDA-Public Use
  Company Number: NVSC2020US067147

PATIENT
  Age: 83 Year

DRUGS (2)
  1. BEOVU [Suspect]
     Active Substance: BROLUCIZUMAB-DBLL
     Indication: NEOVASCULAR AGE-RELATED MACULAR DEGENERATION
     Dosage: 6 MG, OTHER (LEFT EYE)
     Route: 047
     Dates: start: 20191120
  2. BEOVU [Suspect]
     Active Substance: BROLUCIZUMAB-DBLL
     Dosage: 6 MG, OTHER (INJECTION OU (BOTH EYE))
     Route: 047
     Dates: start: 20200121

REACTIONS (4)
  - Visual acuity reduced [Recovering/Resolving]
  - Intraocular pressure increased [Unknown]
  - Iritis [Unknown]
  - Vision blurred [Recovering/Resolving]

NARRATIVE: CASE EVENT DATE: 20200127
